FAERS Safety Report 5278059-1 (Version None)
Quarter: 2007Q1

REPORT INFORMATION
  Report Type: 
  Country: None (occurrence: None)
  Receive Date: 20070327
  Receipt Date: 20070321
  Transmission Date: 20070707
  Serious: Yes (Life-Threatening, Hospitalization)
  Sender: FDA-Public Use
  Company Number: DE-ELI_LILLY_AND_COMPANY-DE200703004542

PATIENT
  Age: 78 Year
  Sex: Male

DRUGS (9)
  1. GEMZAR [Suspect]
     Indication: PANCREATIC CARCINOMA
     Dosage: 1000 MG/M2, UNK
     Route: 042
     Dates: start: 20070112
  2. PANTOZOL [Concomitant]
     Dosage: 40 MG, 2/D
     Route: 048
  3. LEVOTHYROXINE SODIUM [Concomitant]
     Dosage: 100 UNK, UNK
  4. NORVASC [Concomitant]
     Dosage: 5 MG, 2/D
     Route: 048
  5. METOPROLOL SUCCINATE [Concomitant]
     Dosage: 10 MG, DAILY (1/D)
  6. KAMILLOSAN [Concomitant]
  7. CIPROFLOXACIN HCL [Concomitant]
     Route: 058
  8. MOVICOL [Concomitant]
  9. KREON [Concomitant]

REACTIONS (3)
  - PYREXIA [None]
  - RENAL FAILURE ACUTE [None]
  - RENAL TUBULAR NECROSIS [None]
